FAERS Safety Report 17538029 (Version 1)
Quarter: 2020Q1

REPORT INFORMATION
  Report Type: Spontaneous
  Country: GB (occurrence: GB)
  Receive Date: 20200313
  Receipt Date: 20200313
  Transmission Date: 20200409
  Serious: Yes (Hospitalization, Other)
  Sender: FDA-Public Use
  Company Number: GB-PFIZER INC-2020105470

PATIENT
  Age: 60 Year
  Sex: Male

DRUGS (9)
  1. AMLODIPINE [Concomitant]
     Active Substance: AMLODIPINE BESYLATE
     Dosage: 5 MG, 1X/DAY (MORNING)
     Route: 048
  2. BISOPROLOL [Concomitant]
     Active Substance: BISOPROLOL
     Dosage: 5 MG, 1X/DAY (MORNING)
     Route: 048
  3. LANSOPRAZOLE. [Concomitant]
     Active Substance: LANSOPRAZOLE
     Dosage: 30 MG, 1X/DAY (MORNING)
     Route: 048
  4. MEROPENEM. [Suspect]
     Active Substance: MEROPENEM
     Indication: ENDOCARDITIS
     Dosage: UNK
     Dates: start: 20191204, end: 20191210
  5. WARFARIN [Suspect]
     Active Substance: WARFARIN
     Dosage: 4 MG, 1X/DAY
     Route: 048
     Dates: end: 20191201
  6. RAMIPRIL. [Concomitant]
     Active Substance: RAMIPRIL
     Dosage: 5 MG, 1X/DAY (MORNING)
     Route: 048
  7. BENDROFLUMETHIAZIDE [Concomitant]
     Active Substance: BENDROFLUMETHIAZIDE
     Dosage: MORNING
     Route: 048
  8. MEROPENEM. [Suspect]
     Active Substance: MEROPENEM
     Dosage: 3 G, 1X/DAY
     Route: 041
     Dates: start: 20191216, end: 20191216
  9. ATORVASTATIN [Concomitant]
     Active Substance: ATORVASTATIN
     Dosage: 80 MG, 1X/DAY (NIGHT)
     Route: 048

REACTIONS (7)
  - Pneumonia [Unknown]
  - Subarachnoid haemorrhage [Recovered/Resolved with Sequelae]
  - Rash [Recovered/Resolved]
  - Septic embolus [Unknown]
  - Confusional state [Unknown]
  - Product use in unapproved indication [Unknown]
  - Off label use [Unknown]

NARRATIVE: CASE EVENT DATE: 20191201
